FAERS Safety Report 8601713-8 (Version None)
Quarter: 2012Q3

REPORT INFORMATION
  Report Type: 
  Country: None (occurrence: None)
  Receive Date: 20120817
  Receipt Date: 20120315
  Transmission Date: 20120928
  Serious: Yes (Other)
  Sender: FDA-Public Use
  Company Number: US-BRISTOL-MYERS SQUIBB COMPANY-16381956

PATIENT

DRUGS (1)
  1. SPRYCEL [Suspect]

REACTIONS (1)
  - PULMONARY ARTERIAL HYPERTENSION [None]
